FAERS Safety Report 6756789-X (Version None)
Quarter: 2010Q2

REPORT INFORMATION
  Report Type: 
  Country: None (occurrence: None)
  Receive Date: 20100604
  Receipt Date: 20100528
  Transmission Date: 20101027
  Serious: Yes (Other)
  Sender: FDA-Public Use
  Company Number: DE-JNJCH-2010013213

PATIENT
  Age: 47 Year
  Sex: Male

DRUGS (2)
  1. ZYRTEC [Suspect]
     Indication: DRUG USE FOR UNKNOWN INDICATION
     Dosage: TEXT:UNKNOWN
     Route: 065
  2. ZYRTEC [Suspect]
     Dosage: TEXT:UNKNOWN
     Route: 065

REACTIONS (3)
  - DEAFNESS UNILATERAL [None]
  - HYPERACUSIS [None]
  - TINNITUS [None]
